FAERS Safety Report 8029791-8 (Version None)
Quarter: 2012Q1

REPORT INFORMATION
  Report Type: 
  Country: None (occurrence: None)
  Receive Date: 20120109
  Receipt Date: 20111228
  Transmission Date: 20120608
  Serious: Yes (Hospitalization)
  Sender: FDA-Public Use
  Company Number: US-ELI_LILLY_AND_COMPANY-US201106008251

PATIENT
  Sex: Female

DRUGS (1)
  1. FORTEO [Suspect]
     Indication: OSTEOPOROSIS
     Dosage: 20 UG, QD

REACTIONS (6)
  - DIALYSIS DEVICE INSERTION [None]
  - CONFUSIONAL STATE [None]
  - FALL [None]
  - CONVULSION [None]
  - DRUG DOSE OMISSION [None]
  - LEG AMPUTATION [None]
